FAERS Safety Report 16967407 (Version 2)
Quarter: 2020Q3

REPORT INFORMATION
  Report Type: Spontaneous
  Country: IT (occurrence: IT)
  Receive Date: 20191028
  Receipt Date: 20200925
  Transmission Date: 20201102
  Serious: Yes (Other)
  Sender: FDA-Public Use
  Company Number: IT-MYLANLABS-2019M1101326

PATIENT
  Sex: Female

DRUGS (6)
  1. ORLISTAT. [Interacting]
     Active Substance: ORLISTAT
     Indication: HIV INFECTION
     Dosage: 180 MILLIGRAM, QD, (60 MILLIGRAM, TID)
     Route: 065
  2. TENOFOVIR [Suspect]
     Active Substance: TENOFOVIR
     Indication: HIV INFECTION
     Dosage: 245 MILLIGRAM
     Route: 065
  3. SINETROL [Interacting]
     Active Substance: HERBALS
     Indication: HIV INFECTION
     Dosage: 450 MILLIGRAM, BID
     Route: 065
  4. RITONAVIR. [Interacting]
     Active Substance: RITONAVIR
     Indication: HIV INFECTION
     Dosage: 100 MILLIGRAM
     Route: 065
  5. ATAZANAVIR SULFATE. [Interacting]
     Active Substance: ATAZANAVIR SULFATE
     Indication: HIV INFECTION
     Dosage: 300 MILLIGRAM
     Route: 065
  6. EMTRICITABINE [Interacting]
     Active Substance: EMTRICITABINE
     Indication: HIV INFECTION
     Dosage: 200 MILLIGRAM
     Route: 065

REACTIONS (2)
  - Drug interaction [Unknown]
  - Virologic failure [Unknown]
